FAERS Safety Report 8026796-8 (Version None)
Quarter: 2011Q4

REPORT INFORMATION
  Report Type: 
  Country: None (occurrence: None)
  Receive Date: 20111130
  Receipt Date: 20110509
  Transmission Date: 20120403
  Serious: Yes (Hospitalization, Other)
  Sender: FDA-Public Use
  Company Number: US200912005021

PATIENT
  Age: 66 Year
  Sex: Female
  Weight: 79.8 kg

DRUGS (6)
  1. BYETTA [Suspect]
     Indication: DIABETES MELLITUS
     Dates: start: 20060921, end: 20061002
  2. NEXIUM [Concomitant]
  3. GLUCOTROL [Concomitant]
  4. MULTIVITAMIN [Concomitant]
  5. EXENATIDE (EXENATIDE PEN, DISPOSABLE) [Concomitant]
  6. ACEON [Concomitant]

REACTIONS (3)
  - RENAL FAILURE [None]
  - PANCREATITIS [None]
  - PANCREATITIS ACUTE [None]
